FAERS Safety Report 10226958 (Version 2)
Quarter: 2014Q3

REPORT INFORMATION
  Report Type: Spontaneous
  Country: US (occurrence: US)
  Receive Date: 20140610
  Receipt Date: 20140731
  Transmission Date: 20150326
  Serious: Yes (Hospitalization, Other)
  Sender: FDA-Public Use
  Company Number: US-BRISTOL-MYERS SQUIBB COMPANY-20940334

PATIENT
  Age: 9 Year
  Sex: Female
  Weight: 39.6 kg

DRUGS (6)
  1. BUDESONIDE. [Concomitant]
     Active Substance: BUDESONIDE
  2. MONTELUKAST [Concomitant]
     Active Substance: MONTELUKAST SODIUM
  3. FAMOTIDINE. [Concomitant]
     Active Substance: FAMOTIDINE
  4. FLOLAN [Suspect]
     Active Substance: EPOPROSTENOL SODIUM
     Indication: PULMONARY ARTERIAL HYPERTENSION
     Dosage: STRLE POWDER?INT INFU?101.2 NG/KG/MIN?MON:2MG,SUN,TUE,WED,FRI:3MG?R.O.A: G-TUBE
     Route: 042
     Dates: start: 200709
  5. FRUSEMIDE [Concomitant]
     Active Substance: FUROSEMIDE
  6. WARFARIN SODIUM. [Suspect]
     Active Substance: WARFARIN SODIUM

REACTIONS (12)
  - Convulsion [Recovering/Resolving]
  - Infarction [Recovering/Resolving]
  - Ischaemic stroke [Recovering/Resolving]
  - Pyrexia [Recovering/Resolving]
  - Pulmonary hypertension [Recovering/Resolving]
  - Blood electrolytes abnormal [Recovering/Resolving]
  - Pain in extremity [Recovering/Resolving]
  - Pneumococcal infection [Recovering/Resolving]
  - Sepsis [Recovering/Resolving]
  - Device related infection [Recovering/Resolving]
  - Vomiting [Recovering/Resolving]
  - Diarrhoea [Recovering/Resolving]

NARRATIVE: CASE EVENT DATE: 20140226
